FAERS Safety Report 13110972 (Version 1)
Quarter: 2017Q1

REPORT INFORMATION
  Report Type: Spontaneous
  Country: JP (occurrence: JP)
  Receive Date: 20170112
  Receipt Date: 20170112
  Transmission Date: 20170428
  Serious: Yes (Life-Threatening, Hospitalization)
  Sender: FDA-Public Use
  Company Number: JP-PFIZER INC-2017011570

PATIENT
  Age: 32 Year
  Sex: Male
  Weight: 96.5 kg

DRUGS (2)
  1. EFFEXOR [Suspect]
     Active Substance: VENLAFAXINE HYDROCHLORIDE
     Indication: DEPRESSIVE SYMPTOM
     Dosage: UNK
  2. EFFEXOR [Suspect]
     Active Substance: VENLAFAXINE HYDROCHLORIDE
     Dosage: 1500 MG, SINGLE
     Dates: start: 20170110, end: 20170110

REACTIONS (6)
  - Suicide attempt [Unknown]
  - White blood cell count increased [Unknown]
  - Tachycardia [Unknown]
  - Vomiting [Unknown]
  - Intentional overdose [Unknown]
  - Gastroenteritis [Unknown]

NARRATIVE: CASE EVENT DATE: 201701
